FAERS Safety Report 25759194 (Version 2)
Quarter: 2025Q3

REPORT INFORMATION
  Report Type: Spontaneous
  Country: EU (occurrence: EU)
  Receive Date: 20250904
  Receipt Date: 20250919
  Transmission Date: 20251021
  Serious: Yes (Other)
  Sender: SANDOZ
  Company Number: EU-002147023-NVSC2024DE188061

PATIENT
  Sex: Female
  Weight: 80 kg

DRUGS (2)
  1. ANASTROZOLE [Suspect]
     Active Substance: ANASTROZOLE
     Indication: Hormone receptor positive HER2 negative breast cancer
     Dosage: 1 MG, QD
     Route: 048
     Dates: start: 20181113, end: 20191009
  2. KISQALI [Suspect]
     Active Substance: RIBOCICLIB SUCCINATE
     Indication: Hormone receptor positive HER2 negative breast cancer
     Route: 048
     Dates: start: 20181113

REACTIONS (2)
  - Neutropenia [Recovered/Resolved]
  - Paraesthesia [Recovered/Resolved]

NARRATIVE: CASE EVENT DATE: 20181220
